FAERS Safety Report 5237538-3 (Version None)
Quarter: 2007Q1

REPORT INFORMATION
  Report Type: 
  Country: None (occurrence: None)
  Receive Date: 20070213
  Receipt Date: 20070201
  Transmission Date: 20070707
  Serious: Yes (Life-Threatening, Other)
  Sender: FDA-Public Use
  Company Number: US-PFIZER INC-2006151032

PATIENT
  Sex: Female
  Weight: 61.2 kg

DRUGS (7)
  1. SUTENT [Suspect]
     Indication: METASTATIC NEOPLASM
     Dosage: DAILY DOSE:50MG
  2. SUTENT [Suspect]
     Dosage: DAILY DOSE:25MG
  3. ACCUPRIL [Concomitant]
  4. ZETIA [Concomitant]
  5. ARTHROTEC [Concomitant]
  6. LOZOL [Concomitant]
  7. WARFARIN SODIUM [Concomitant]

REACTIONS (8)
  - ANGIOEDEMA [None]
  - DYSPHAGIA [None]
  - GLOSSODYNIA [None]
  - HYPERSENSITIVITY [None]
  - ORAL PAIN [None]
  - PAIN IN JAW [None]
  - SWOLLEN TONGUE [None]
  - TONGUE OEDEMA [None]
